FAERS Safety Report 19949499 (Version 1)
Quarter: 2021Q4

REPORT INFORMATION
  Report Type: Spontaneous
  Country: US (occurrence: US)
  Receive Date: 20211012
  Receipt Date: 20211012
  Transmission Date: 20220303
  Serious: Yes (Death)
  Sender: FDA-Public Use
  Company Number: None

PATIENT
  Age: 54 Year
  Sex: Male
  Weight: 83.8 kg

DRUGS (1)
  1. HEPARIN [Suspect]
     Active Substance: HEPARIN SODIUM
     Dates: start: 20210903, end: 20210905

REACTIONS (5)
  - Haemorrhage [None]
  - Pulse absent [None]
  - COVID-19 [None]
  - Acute kidney injury [None]
  - Transfusion [None]

NARRATIVE: CASE EVENT DATE: 20210905
